FAERS Safety Report 22389804 (Version 1)
Quarter: 2023Q2

REPORT INFORMATION
  Report Type: Spontaneous
  Country: US (occurrence: None)
  Receive Date: 20230530
  Receipt Date: 20230530
  Transmission Date: 20230722
  Serious: Yes (Other)
  Sender: FDA-Public Use
  Company Number: None

PATIENT
  Age: 73 Year
  Sex: Female
  Weight: 63.5 kg

DRUGS (13)
  1. OFLOXACIN OPHTH SOLN [Suspect]
     Active Substance: OFLOXACIN
     Indication: Cataract operation
     Dosage: FREQUENCY : 3 TIMES A DAY;?
  2. SYNTHROID [Concomitant]
     Active Substance: LEVOTHYROXINE SODIUM
  3. FINACEA [Concomitant]
     Active Substance: AZELAIC ACID
  4. CELEBREX [Concomitant]
     Active Substance: CELECOXIB
  5. VOLTAREN [Concomitant]
     Active Substance: DICLOFENAC SODIUM
  6. TRAMADOL [Concomitant]
     Active Substance: TRAMADOL
  7. GABAPENTIN [Concomitant]
     Active Substance: GABAPENTIN
  8. MAGNESIUM [Concomitant]
     Active Substance: MAGNESIUM
  9. GLUCOSAMINE [Concomitant]
     Active Substance: GLUCOSAMINE
  10. VITAMIN C [Concomitant]
     Active Substance: ASCORBIC ACID
  11. VITAMIN D3 [Concomitant]
     Active Substance: CHOLECALCIFEROL
  12. CALCIUM [Concomitant]
     Active Substance: CALCIUM
  13. 1 A DAY VIT [Concomitant]

REACTIONS (5)
  - Fatigue [None]
  - Headache [None]
  - Mood altered [None]
  - Depressed mood [None]
  - Crying [None]

NARRATIVE: CASE EVENT DATE: 20230514
